FAERS Safety Report 10787787 (Version 3)
Quarter: 2015Q3

REPORT INFORMATION
  Report Type: Spontaneous
  Country: JP (occurrence: None)
  Receive Date: 20150210
  Receipt Date: 20150908
  Transmission Date: 20151125
  Serious: Yes (Death, Life-Threatening, Hospitalization)
  Sender: FDA-Public Use
  Company Number: JP-2015-0377

PATIENT
  Age: 0 Day
  Sex: Female

DRUGS (12)
  1. BENZALIN (NITRAZEPAM) [Concomitant]
     Active Substance: NITRAZEPAM
  2. ALOXI (PALONOSETRON HYDROCHLORIDE) [Concomitant]
  3. EQUA (VILDAGLIPTIN) [Concomitant]
     Active Substance: VILDAGLIPTIN
  4. HERCEPTIN [Concomitant]
     Active Substance: TRASTUZUMAB
  5. AMLODIN  (AMLODIPINE BESILATE) [Concomitant]
  6. GASTER [Concomitant]
     Active Substance: FAMOTIDINE
  7. NAVELBINE [Suspect]
     Active Substance: VINORELBINE TARTRATE
     Indication: BREAST CANCER RECURRENT
     Route: 042
     Dates: start: 20141224
  8. DIOVAN [Concomitant]
     Active Substance: VALSARTAN
  9. HALCION (TRIAZOLAM) [Concomitant]
  10. DECADRON (DEXAMETHASONE ACETATE) [Concomitant]
  11. ISOTONIC SODIUM CHLORIDE SOLUTION (SODIUM CHLORIDE) [Concomitant]
  12. GLUCOSE (GLUCOSE) [Concomitant]

REACTIONS (11)
  - Asthma [None]
  - Diverticulitis [None]
  - Disseminated intravascular coagulation [None]
  - Diverticular perforation [None]
  - Multi-organ failure [None]
  - Megacolon [None]
  - Pneumonia [None]
  - Septic shock [None]
  - Ileus paralytic [None]
  - Sepsis [None]
  - Vomiting [None]

NARRATIVE: CASE EVENT DATE: 20150121
